FAERS Safety Report 6275996-6 (Version None)
Quarter: 2009Q3

REPORT INFORMATION
  Report Type: 
  Country: None (occurrence: None)
  Receive Date: 20090720
  Receipt Date: 20090709
  Transmission Date: 20100115
  Serious: Yes (Hospitalization, Other)
  Sender: FDA-Public Use
  Company Number: JPI-P-007866

PATIENT
  Age: 54 Year
  Sex: Female
  Weight: 74.8435 kg

DRUGS (14)
  1. XYREM [Suspect]
     Indication: CATAPLEXY
     Dosage: 6 GM (3 GM, 2 IN 1 D), ORAL,  9 GM (4.5 GM, 2 IN 1  D), ORAL, 9 GM (4.5 GM, 2 IN 1 D), ORAL
     Route: 048
     Dates: start: 20090601, end: 20090629
  2. XYREM [Suspect]
     Indication: CATAPLEXY
     Dosage: 6 GM (3 GM, 2 IN 1 D), ORAL,  9 GM (4.5 GM, 2 IN 1  D), ORAL, 9 GM (4.5 GM, 2 IN 1 D), ORAL
     Route: 048
     Dates: start: 20080123
  3. XYREM [Suspect]
     Indication: CATAPLEXY
     Dosage: 6 GM (3 GM, 2 IN 1 D), ORAL,  9 GM (4.5 GM, 2 IN 1  D), ORAL, 9 GM (4.5 GM, 2 IN 1 D), ORAL
     Route: 048
     Dates: start: 20090708
  4. MUSCLE RELAXANTS [Suspect]
     Indication: DRUG USE FOR UNKNOWN INDICATION
  5. HYDROCODONE AND ASPIRIN [Concomitant]
  6. BENAZEPRIL HYDROCHLORIDE [Concomitant]
  7. AMLODIPINE [Concomitant]
  8. BUPROPION HYDROCHLORIDE SUSTAINED RELEASE [Concomitant]
  9. FLUOXETINE [Concomitant]
  10. CETIRIZINE [Concomitant]
  11. LEVOTHYROXINE SODIUM [Concomitant]
  12. CLONAZEPAM [Concomitant]
  13. CARBIDOPA-LEVODOPA [Concomitant]
  14. DEPO-ESTRADIOL [Concomitant]

REACTIONS (11)
  - ACCIDENTAL OVERDOSE [None]
  - BLADDER SPASM [None]
  - GLOSSITIS [None]
  - INCOHERENT [None]
  - INTERVERTEBRAL DISC DEGENERATION [None]
  - INTERVERTEBRAL DISC PROTRUSION [None]
  - NIGHT SWEATS [None]
  - PAIN IN EXTREMITY [None]
  - SLEEP TALKING [None]
  - SOMNAMBULISM [None]
  - TOOTH ABSCESS [None]
